FAERS Safety Report 14676239 (Version 5)
Quarter: 2018Q4

REPORT INFORMATION
  Report Type: Report from Study
  Country: US (occurrence: US)
  Receive Date: 20180323
  Receipt Date: 20181203
  Transmission Date: 20190204
  Serious: Yes (Hospitalization)
  Sender: FDA-Public Use
  Company Number: US-EXELIXIS-CABO-18012667

PATIENT
  Sex: Male
  Weight: 72.88 kg

DRUGS (22)
  1. ONDANSETRON [Concomitant]
     Active Substance: ONDANSETRON
  2. BENADRYL [Concomitant]
     Active Substance: DIPHENHYDRAMINE HYDROCHLORIDE
  3. CABOMETYX [Suspect]
     Active Substance: CABOZANTINIB S-MALATE
     Dosage: 40 MG, QD
     Dates: start: 20180727
  4. XGEVA [Concomitant]
     Active Substance: DENOSUMAB
  5. AMPICILLIN [Concomitant]
     Active Substance: AMPICILLIN
  6. TYLENOL [Concomitant]
     Active Substance: ACETAMINOPHEN
  7. CABOMETYX [Suspect]
     Active Substance: CABOZANTINIB S-MALATE
     Indication: RENAL CANCER
     Dosage: 60 MG, QD
     Route: 048
     Dates: start: 20171208, end: 201802
  8. PROAIR HFA [Concomitant]
     Active Substance: ALBUTEROL SULFATE
  9. NUPERCAINAL [Concomitant]
     Active Substance: DIBUCAINE
  10. METOPROLOL. [Concomitant]
     Active Substance: METOPROLOL
  11. CABOMETYX [Suspect]
     Active Substance: CABOZANTINIB S-MALATE
     Indication: BONE CANCER
     Dosage: 20 MG, QD
     Route: 048
     Dates: start: 20180314
  12. AMLODIPINE [Concomitant]
     Active Substance: AMLODIPINE BESYLATE
  13. VELTASSA [Concomitant]
     Active Substance: PATIROMER
  14. CABOMETYX [Suspect]
     Active Substance: CABOZANTINIB S-MALATE
     Dosage: 60 MG, QD
     Route: 048
     Dates: start: 201805, end: 20180716
  15. HYDROCORTISONE. [Concomitant]
     Active Substance: HYDROCORTISONE
  16. CALCIUM [Concomitant]
     Active Substance: CALCIUM
  17. SYNTHROID [Concomitant]
     Active Substance: LEVOTHYROXINE SODIUM
  18. ASA [Concomitant]
     Active Substance: ASPIRIN
  19. PRILOSEC [Concomitant]
     Active Substance: OMEPRAZOLE MAGNESIUM
  20. ATORVASTATIN CALCIUM. [Concomitant]
     Active Substance: ATORVASTATIN CALCIUM
  21. IMODIUM [Concomitant]
     Active Substance: LOPERAMIDE HYDROCHLORIDE
  22. MAGNESIUM OXIDE. [Concomitant]
     Active Substance: MAGNESIUM OXIDE

REACTIONS (15)
  - Stomatitis [Recovering/Resolving]
  - Mental status changes [Recovering/Resolving]
  - Glossodynia [Unknown]
  - Acute kidney injury [Recovered/Resolved]
  - Pain in extremity [Recovering/Resolving]
  - Blood potassium increased [Recovering/Resolving]
  - Conjunctivitis [Recovered/Resolved]
  - Diarrhoea [Not Recovered/Not Resolved]
  - Gastrointestinal infection [Recovering/Resolving]
  - Urinary retention [Recovered/Resolved]
  - Skin exfoliation [Unknown]
  - Nausea [Recovered/Resolved]
  - Vomiting [Recovered/Resolved]
  - Metabolic acidosis [Recovered/Resolved]
  - Adrenal insufficiency [Recovering/Resolving]
